FAERS Safety Report 5571253-1 (Version None)
Quarter: 2007Q4

REPORT INFORMATION
  Report Type: 
  Country: None (occurrence: None)
  Receive Date: 20071221
  Receipt Date: 20070327
  Transmission Date: 20080405
  Serious: No
  Sender: FDA-Public Use
  Company Number: A0644814A

PATIENT
  Age: 55 Year
  Sex: Female

DRUGS (5)
  1. FLUTICASONE PROPIONATE [Suspect]
     Dosage: 2SPR PER DAY
     Route: 045
     Dates: start: 20061227, end: 20070305
  2. ACULAR [Concomitant]
  3. CLARITIN [Concomitant]
  4. ZYRTEC [Concomitant]
  5. SYNTHROID [Concomitant]

REACTIONS (4)
  - DRUG INEFFECTIVE [None]
  - EPISTAXIS [None]
  - NASAL ULCER [None]
  - PHARMACEUTICAL PRODUCT COMPLAINT [None]
